FAERS Safety Report 24582180 (Version 2)
Quarter: 2024Q4

REPORT INFORMATION
  Report Type: Report from Study
  Country: TN (occurrence: TN)
  Receive Date: 20241105
  Receipt Date: 20241118
  Transmission Date: 20250114
  Serious: Yes (Hospitalization)
  Sender: ABBVIE
  Company Number: TN-ABBVIE-5987011

PATIENT
  Age: 61 Year
  Sex: Female

DRUGS (9)
  1. HUMIRA [Suspect]
     Active Substance: ADALIMUMAB
     Indication: Crohn^s disease
     Dosage: 40 MG (LOADING DOSE)?FORM STRENGTH: 40MG
     Route: 058
     Dates: start: 20190919, end: 20190919
  2. HUMIRA [Suspect]
     Active Substance: ADALIMUMAB
     Dosage: FORM STRENGTH: 40MG
     Route: 058
     Dates: start: 20210825, end: 20220126
  3. HUMIRA [Suspect]
     Active Substance: ADALIMUMAB
     Dosage: FORM STRENGTH: 40MG
     Route: 058
     Dates: start: 20200304, end: 20200513
  4. HUMIRA [Suspect]
     Active Substance: ADALIMUMAB
     Dosage: FORM STRENGTH: 40MG
     Route: 058
     Dates: start: 20191101, end: 20200124
  5. HUMIRA [Suspect]
     Active Substance: ADALIMUMAB
     Dosage: 40 MG (LOADING DOSE)?FORM STRENGTH: 40MG
     Route: 058
     Dates: start: 20190918, end: 20190918
  6. HUMIRA [Suspect]
     Active Substance: ADALIMUMAB
     Dosage: FORM STRENGTH: 40MG
     Route: 058
     Dates: start: 20200618, end: 20210807
  7. HUMIRA [Suspect]
     Active Substance: ADALIMUMAB
     Dosage: 80 MG (LOADING DOSE)?FORM STRENGTH: 40 MG
     Route: 058
     Dates: start: 20190920, end: 20191018
  8. HUMIRA [Suspect]
     Active Substance: ADALIMUMAB
     Dosage: FORM STRENGTH: 40MG
     Route: 058
     Dates: start: 20220312, end: 20230228
  9. HUMIRA [Suspect]
     Active Substance: ADALIMUMAB
     Dosage: FORM STRENGTH: 40 MG
     Route: 058
     Dates: start: 20130101

REACTIONS (13)
  - Anal fistula [Not Recovered/Not Resolved]
  - Drug ineffective [Unknown]
  - Proctalgia [Not Recovered/Not Resolved]
  - Purulent discharge [Not Recovered/Not Resolved]
  - Drug hypersensitivity [Recovered/Resolved]
  - Malaise [Not Recovered/Not Resolved]
  - Anorectal swelling [Unknown]
  - Abscess [Unknown]
  - Anal fissure [Unknown]
  - Pruritus [Not Recovered/Not Resolved]
  - Psoriasis [Recovered/Resolved]
  - Abscess [Unknown]
  - Allergic oedema [Recovered/Resolved]

NARRATIVE: CASE EVENT DATE: 20230101
